FAERS Safety Report 17878824 (Version 1)
Quarter: 2020Q2

REPORT INFORMATION
  Report Type: Spontaneous
  Country: PL (occurrence: PL)
  Receive Date: 20200610
  Receipt Date: 20200610
  Transmission Date: 20200714
  Serious: Yes (Hospitalization)
  Sender: FDA-Public Use
  Company Number: PL-SUN PHARMACEUTICAL INDUSTRIES LTD-2020R1-249225

PATIENT
  Age: 82 Year

DRUGS (4)
  1. METHYLPREDNISOLONE. [Suspect]
     Active Substance: METHYLPREDNISOLONE
     Indication: LINEAR IGA DISEASE
     Dosage: UNK
     Route: 065
  2. HYDROXYZINE [Suspect]
     Active Substance: HYDROXYZINE HYDROCHLORIDE
     Indication: LINEAR IGA DISEASE
     Dosage: UNK
     Route: 065
  3. CLOBETASOL [Suspect]
     Active Substance: CLOBETASOL
     Indication: LINEAR IGA DISEASE
     Dosage: UNK
     Route: 061
  4. HYDROCORTISONE. [Suspect]
     Active Substance: HYDROCORTISONE
     Indication: LINEAR IGA DISEASE
     Dosage: UNK
     Route: 061

REACTIONS (1)
  - Treatment failure [Unknown]
